FAERS Safety Report 6380461-1 (Version None)
Quarter: 2009Q3

REPORT INFORMATION
  Report Type: 
  Country: None (occurrence: None)
  Receive Date: 20090924
  Receipt Date: 20090910
  Transmission Date: 20100115
  Serious: Yes (Other)
  Sender: FDA-Public Use
  Company Number: 8051451

PATIENT
  Sex: Female

DRUGS (1)
  1. XYZAL [Suspect]
     Dosage: 5 MG /D PO
     Route: 048
     Dates: start: 20090801, end: 20090801

REACTIONS (2)
  - ANAPHYLACTIC SHOCK [None]
  - ATRIAL FIBRILLATION [None]
